FAERS Safety Report 19502643 (Version 6)
Quarter: 2022Q1

REPORT INFORMATION
  Report Type: Report from Study
  Country: US (occurrence: US)
  Receive Date: 20210707
  Receipt Date: 20220318
  Transmission Date: 20220423
  Serious: Yes (Hospitalization)
  Sender: FDA-Public Use
  Company Number: NVSC2021US149521

PATIENT
  Age: 41 Year
  Sex: Female

DRUGS (1)
  1. GILENYA [Suspect]
     Active Substance: FINGOLIMOD HYDROCHLORIDE
     Indication: Relapsing-remitting multiple sclerosis
     Dosage: 0.5 MG, QD
     Route: 048
     Dates: start: 20210610

REACTIONS (18)
  - Staphylococcal infection [Recovering/Resolving]
  - Fall [Unknown]
  - Chest discomfort [Unknown]
  - Lung disorder [Unknown]
  - Bone marrow disorder [Unknown]
  - Pulmonary mass [Unknown]
  - Hepatic enzyme increased [Unknown]
  - Abdominal pain [Unknown]
  - Pain in extremity [Unknown]
  - Fatigue [Unknown]
  - Lymphocyte count decreased [Unknown]
  - Headache [Unknown]
  - Diarrhoea [Unknown]
  - Cough [Unknown]
  - Influenza [Unknown]
  - Sinusitis [Unknown]
  - Back pain [Unknown]
  - Drug ineffective [Unknown]

NARRATIVE: CASE EVENT DATE: 20210830
